FAERS Safety Report 9336484 (Version 2)
Quarter: 2013Q3

REPORT INFORMATION
  Report Type: Spontaneous
  Country: US (occurrence: US)
  Receive Date: 20130607
  Receipt Date: 20130712
  Transmission Date: 20140515
  Serious: Yes (Death, Hospitalization)
  Sender: FDA-Public Use
  Company Number: US-JNJFOC-20130522887

PATIENT
  Age: 60 Year
  Sex: Male
  Weight: 147.3 kg

DRUGS (16)
  1. REMICADE [Suspect]
     Indication: PSORIATIC ARTHROPATHY
     Route: 042
     Dates: start: 20130405
  2. REMICADE [Suspect]
     Indication: PSORIATIC ARTHROPATHY
     Dosage: 7 MG/KG
     Route: 042
     Dates: start: 200707
  3. REMICADE [Suspect]
     Indication: PSORIASIS
     Route: 042
     Dates: start: 20130405
  4. REMICADE [Suspect]
     Indication: PSORIASIS
     Dosage: 7 MG/KG
     Route: 042
     Dates: start: 200707
  5. LEVAQUIN [Suspect]
     Indication: PRODUCT USED FOR UNKNOWN INDICATION
     Route: 065
     Dates: start: 201305
  6. BACTRIM [Suspect]
     Indication: PRODUCT USED FOR UNKNOWN INDICATION
     Route: 065
     Dates: start: 201305
  7. METHOTREXATE [Concomitant]
     Dosage: 22.5 (UNITS UNSPECIFIED)
     Route: 065
  8. FOLIC ACID [Concomitant]
     Route: 065
  9. VITAMIN B [Concomitant]
     Dosage: 3000 UNITS
     Route: 065
  10. CELEXA [Concomitant]
     Route: 065
  11. PLAVIX [Concomitant]
     Route: 065
  12. NORVASC [Concomitant]
     Route: 065
  13. LISINOPRIL [Concomitant]
     Route: 065
  14. ZOCOR [Concomitant]
     Route: 065
  15. TOPROL [Concomitant]
     Route: 065
  16. WELCHOL [Concomitant]
     Route: 065

REACTIONS (6)
  - Respiratory distress [Fatal]
  - Pneumonia [Fatal]
  - Sepsis [Fatal]
  - Renal failure acute [Fatal]
  - Pancytopenia [Fatal]
  - Liver disorder [Fatal]
